FAERS Safety Report 7590940-7 (Version None)
Quarter: 2011Q3

REPORT INFORMATION
  Report Type: 
  Country: None (occurrence: None)
  Receive Date: 20110705
  Receipt Date: 20110627
  Transmission Date: 20111222
  Serious: Yes (Death, Hospitalization)
  Sender: FDA-Public Use
  Company Number: PHHO2011US05152

PATIENT
  Sex: Female
  Weight: 61 kg

DRUGS (25)
  1. VELCADE [Concomitant]
  2. DOCUSATE [Concomitant]
  3. AQUAPHOR [Concomitant]
  4. PRINIVIL [Concomitant]
  5. ATIVAN [Concomitant]
  6. ALBUTEROL SULFATE AUTOHALER [Concomitant]
  7. PREVACID [Concomitant]
  8. MEPACT [Concomitant]
  9. BACTRIM [Concomitant]
  10. ZOFRAN [Concomitant]
  11. AZITHROMYCIN [Concomitant]
  12. EUCERIN [Concomitant]
  13. IFOSFAMIDE [Concomitant]
  14. ALLEGRA [Concomitant]
  15. NEUPOGEN [Concomitant]
  16. ZOMETA [Suspect]
     Indication: BONE SARCOMA
     Dosage: UNK
  17. CALCIUM CARBONATE [Concomitant]
  18. VFEND [Concomitant]
  19. ELIDEL [Concomitant]
  20. ZESTRIL [Concomitant]
  21. VITAMIN D [Concomitant]
  22. TYLENOL-500 [Concomitant]
  23. CODEINE [Concomitant]
  24. DILAUDID [Concomitant]
  25. ZINC OXIDE [Concomitant]

REACTIONS (8)
  - HYPOCALCAEMIA [None]
  - HYPOPHOSPHATAEMIA [None]
  - HYPOKALAEMIA [None]
  - NEOPLASM MALIGNANT [None]
  - NEOPLASM PROGRESSION [None]
  - DEHYDRATION [None]
  - DIARRHOEA [None]
  - NAUSEA [None]
